FAERS Safety Report 18744825 (Version 1)
Quarter: 2021Q1

REPORT INFORMATION
  Report Type: Spontaneous
  Country: CA (occurrence: CA)
  Receive Date: 20210115
  Receipt Date: 20210115
  Transmission Date: 20210419
  Serious: Yes (Hospitalization, Other)
  Sender: FDA-Public Use
  Company Number: CA-ABBVIE-21K-028-3727858-00

PATIENT
  Age: 59 Year
  Sex: Female

DRUGS (22)
  1. INFLECTRA [Suspect]
     Active Substance: INFLIXIMAB-DYYB
     Dosage: ONCE IN 0, 2, 6 THEN 8 WEEKS
     Route: 042
     Dates: start: 20190110, end: 20190110
  2. INFLECTRA [Suspect]
     Active Substance: INFLIXIMAB-DYYB
     Route: 042
     Dates: start: 20200820, end: 20200820
  3. INFLECTRA [Suspect]
     Active Substance: INFLIXIMAB-DYYB
     Route: 050
     Dates: start: 20190819, end: 20190819
  4. INFLECTRA [Suspect]
     Active Substance: INFLIXIMAB-DYYB
     Route: 042
     Dates: start: 20190819, end: 20191107
  5. INFLECTRA [Suspect]
     Active Substance: INFLIXIMAB-DYYB
     Route: 042
     Dates: start: 20191212, end: 20191212
  6. INFLECTRA [Suspect]
     Active Substance: INFLIXIMAB-DYYB
     Route: 042
     Dates: start: 20200716, end: 20200716
  7. INFLECTRA [Suspect]
     Active Substance: INFLIXIMAB-DYYB
     Route: 042
     Dates: start: 20190926, end: 20190926
  8. INFLECTRA [Suspect]
     Active Substance: INFLIXIMAB-DYYB
     Route: 042
     Dates: start: 20200302, end: 20200302
  9. INFLECTRA [Suspect]
     Active Substance: INFLIXIMAB-DYYB
     Dosage: ONCE IN 0, 2, 6 THEN 8 WEEKS
     Route: 042
     Dates: start: 20190502, end: 20190502
  10. INFLECTRA [Suspect]
     Active Substance: INFLIXIMAB-DYYB
     Route: 042
     Dates: start: 20200120, end: 20200120
  11. INFLECTRA [Suspect]
     Active Substance: INFLIXIMAB-DYYB
     Route: 042
     Dates: start: 20200928, end: 20200928
  12. HUMIRA [Suspect]
     Active Substance: ADALIMUMAB
     Indication: ANKYLOSING SPONDYLITIS
     Route: 058
  13. INFLECTRA [Suspect]
     Active Substance: INFLIXIMAB-DYYB
     Indication: ANKYLOSING SPONDYLITIS
     Dosage: ONCE IN 0, 2, 6 THEN 8 WEEKS
     Route: 042
     Dates: start: 20181126, end: 20181210
  14. INFLECTRA [Suspect]
     Active Substance: INFLIXIMAB-DYYB
     Route: 042
     Dates: start: 20200402, end: 20200402
  15. TRAMADOL. [Concomitant]
     Active Substance: TRAMADOL
     Indication: PRODUCT USED FOR UNKNOWN INDICATION
  16. METFORMIN [Concomitant]
     Active Substance: METFORMIN HYDROCHLORIDE
     Indication: PRODUCT USED FOR UNKNOWN INDICATION
  17. INFLECTRA [Suspect]
     Active Substance: INFLIXIMAB-DYYB
     Dosage: ONCE IN 0, 2, 6 THEN 8 WEEKS
     Route: 042
     Dates: start: 20190705, end: 20190705
  18. INFLECTRA [Suspect]
     Active Substance: INFLIXIMAB-DYYB
     Route: 042
     Dates: start: 20191107, end: 20191107
  19. INFLECTRA [Suspect]
     Active Substance: INFLIXIMAB-DYYB
     Dosage: ONCE IN 0, 2, 6 THEN 8 WEEKS
     Route: 042
     Dates: start: 20190314, end: 2019
  20. INFLECTRA [Suspect]
     Active Substance: INFLIXIMAB-DYYB
     Route: 042
     Dates: start: 20200511, end: 20200511
  21. INFLECTRA [Suspect]
     Active Substance: INFLIXIMAB-DYYB
     Route: 042
     Dates: start: 20200608, end: 20200608
  22. INFLECTRA [Suspect]
     Active Substance: INFLIXIMAB-DYYB
     Route: 042
     Dates: start: 20201130

REACTIONS (33)
  - Nasopharyngitis [Unknown]
  - Impetigo [Unknown]
  - Infection [Unknown]
  - Joint injury [Unknown]
  - Therapeutic response shortened [Unknown]
  - Drug ineffective [Unknown]
  - Loss of personal independence in daily activities [Unknown]
  - Wound complication [Unknown]
  - Pain in jaw [Not Recovered/Not Resolved]
  - Arthralgia [Not Recovered/Not Resolved]
  - Fibromyalgia [Not Recovered/Not Resolved]
  - Insomnia [Unknown]
  - Tendonitis [Unknown]
  - Skin wound [Unknown]
  - Wound [Unknown]
  - Nasal congestion [Not Recovered/Not Resolved]
  - Myalgia [Recovered/Resolved]
  - Sleep disorder [Unknown]
  - Coccydynia [Unknown]
  - Joint swelling [Unknown]
  - Musculoskeletal stiffness [Unknown]
  - Impaired quality of life [Unknown]
  - Fat tissue increased [Unknown]
  - Off label use [Unknown]
  - Urticaria [Not Recovered/Not Resolved]
  - C-reactive protein increased [Not Recovered/Not Resolved]
  - Heart rate irregular [Unknown]
  - Blood pressure fluctuation [Recovered/Resolved]
  - Pain in extremity [Not Recovered/Not Resolved]
  - Oesophagitis [Unknown]
  - Red blood cell sedimentation rate increased [Recovered/Resolved]
  - Cough [Unknown]
  - Pain [Recovered/Resolved]

NARRATIVE: CASE EVENT DATE: 2019
